FAERS Safety Report 18320294 (Version 1)
Quarter: 2020Q3

REPORT INFORMATION
  Report Type: Spontaneous
  Country: CA (occurrence: CA)
  Receive Date: 20200929
  Receipt Date: 20200929
  Transmission Date: 20201103
  Serious: Yes (Life-Threatening, Hospitalization)
  Sender: FDA-Public Use
  Company Number: CA-TEVA-2020-CA-1831960

PATIENT
  Age: 69 Year
  Sex: Male
  Weight: 77 kg

DRUGS (12)
  1. BUPROPION. [Concomitant]
     Active Substance: BUPROPION
  2. HUMIRA [Concomitant]
     Active Substance: ADALIMUMAB
  3. ZENHALE [Concomitant]
     Active Substance: FORMOTEROL FUMARATE\MOMETASONE FUROATE
  4. ATIVAN [Concomitant]
     Active Substance: LORAZEPAM
  5. SPIRONOLACTONE. [Concomitant]
     Active Substance: SPIRONOLACTONE
  6. METHOTREXATE. [Suspect]
     Active Substance: METHOTREXATE
     Indication: RHEUMATOID ARTHRITIS
     Route: 058
  7. DIPROSALIC [Concomitant]
     Active Substance: BETAMETHASONE DIPROPIONATE
  8. ELIQUIS [Concomitant]
     Active Substance: APIXABAN
  9. CARVEDILOL. [Concomitant]
     Active Substance: CARVEDILOL
  10. ZOPICLONE [Concomitant]
     Active Substance: ZOPICLONE
  11. CITALOPRAM [Concomitant]
     Active Substance: CITALOPRAM HYDROBROMIDE
  12. PANTOPRAZOLE [Concomitant]
     Active Substance: PANTOPRAZOLE

REACTIONS (2)
  - Normocytic anaemia [Recovered/Resolved with Sequelae]
  - Transfusion [Recovered/Resolved with Sequelae]
